FAERS Safety Report 9771955 (Version 1)
Quarter: 2013Q4

REPORT INFORMATION
  Report Type: Report from Study
  Country: CA (occurrence: CA)
  Receive Date: 20131219
  Receipt Date: 20131219
  Transmission Date: 20140711
  Serious: Yes (Other)
  Sender: FDA-Public Use
  Company Number: CA-JNJFOC-20131207908

PATIENT
  Sex: 0

DRUGS (2)
  1. REMICADE [Suspect]
     Indication: CROHN^S DISEASE
     Dosage: PARENT^S DOSING
     Route: 042
     Dates: start: 2009, end: 201205
  2. REMICADE [Suspect]
     Indication: CROHN^S DISEASE
     Dosage: PARENT^S DOSING
     Route: 042
     Dates: start: 201309

REACTIONS (2)
  - Heart rate increased [Unknown]
  - Foetal exposure during pregnancy [Unknown]
